FAERS Safety Report 11796504 (Version 1)
Quarter: 2015Q4

REPORT INFORMATION
  Report Type: Other
  Country: US (occurrence: US)
  Receive Date: 20151203
  Receipt Date: 20151203
  Transmission Date: 20160305
  Serious: Yes (Hospitalization, Other)
  Sender: FDA-Public Use
  Company Number: US-PURDUE PHARMA-USA-2015-0127735

PATIENT
  Age: 35 Year
  Sex: Female

DRUGS (1)
  1. OXYCODONE HYDROCHLORIDE (SIMILAR TO NDA 22-272) [Suspect]
     Active Substance: OXYCODONE HYDROCHLORIDE
     Indication: BACK PAIN
     Route: 048

REACTIONS (4)
  - Spinal cord ischaemia [Recovering/Resolving]
  - Intentional overdose [Recovered/Resolved]
  - Unresponsive to stimuli [Recovered/Resolved]
  - Quadriplegia [Recovering/Resolving]
